FAERS Safety Report 23878504 (Version 2)
Quarter: 2024Q2

REPORT INFORMATION
  Report Type: Report from Study
  Country: US (occurrence: US)
  Receive Date: 20240521
  Receipt Date: 20240521
  Transmission Date: 20240715
  Serious: No
  Sender: FDA-Public Use
  Company Number: US-PFIZER INC-202400085799

PATIENT
  Age: 36 Year
  Sex: Male

DRUGS (4)
  1. LORBRENA [Suspect]
     Active Substance: LORLATINIB
     Dosage: TAKE 1 TABLET BY MOUTH ONCE DAILY, WITH OR WITHOUT FOOD
     Route: 048
     Dates: start: 20240403
  2. OXYCODONE [Concomitant]
     Active Substance: OXYCODONE\OXYCODONE HYDROCHLORIDE
     Dosage: UNK
  3. OXYCODONE HYDROCHLORIDE [Concomitant]
     Active Substance: OXYCODONE HYDROCHLORIDE
     Dosage: UNK
  4. MS CONTIN [Concomitant]
     Active Substance: MORPHINE SULFATE
     Dosage: UNK

REACTIONS (1)
  - Blood pressure systolic increased [Recovering/Resolving]
